FAERS Safety Report 7482116-9 (Version None)
Quarter: 2011Q2

REPORT INFORMATION
  Report Type: 
  Country: None (occurrence: None)
  Receive Date: 20110516
  Receipt Date: 20110510
  Transmission Date: 20111010
  Serious: No
  Sender: FDA-Public Use
  Company Number: US-PFIZER INC-2011083632

PATIENT
  Sex: Female

DRUGS (2)
  1. AMLODIPINE BESYLATE [Suspect]
     Dosage: UNK
  2. NORVASC [Suspect]
     Dosage: UNK
     Route: 048

REACTIONS (2)
  - FEELING JITTERY [None]
  - NERVOUSNESS [None]
